FAERS Safety Report 7829800-2 (Version None)
Quarter: 2011Q4

REPORT INFORMATION
  Report Type: 
  Country: None (occurrence: None)
  Receive Date: 20111018
  Receipt Date: 20111010
  Transmission Date: 20120403
  Serious: Yes (Death, Other)
  Sender: FDA-Public Use
  Company Number: TPA2010A01079

PATIENT
  Age: 57 Year
  Sex: Female

DRUGS (8)
  1. SYR-322 (SYR-322) [Suspect]
     Indication: TYPE 2 DIABETES MELLITUS
     Dosage: 12.5 MG (12.5 M- 2) PER ORAL
     Route: 048
     Dates: start: 20080130
  2. INDAPAMIDE [Concomitant]
  3. GLIMEPRIDE (GLIMEPRIDE) [Concomitant]
  4. SYR-322-PLACEBO}(SYR-322) [Suspect]
     Indication: TYPE 2 DIABETES MELLITUS
     Dosage: PLACEBO (UNK., 1 IN 1 D) PER ORAL
     Route: 048
     Dates: start: 20070726, end: 20080130
  5. CAPTOPRIL [Concomitant]
  6. SERTRALINE HYDROCHLORIDE [Concomitant]
  7. PIOGLITAZONE HYDROCHLORIDE [Suspect]
     Indication: TYPE 2 DIABETES MELLITUS
     Dosage: 30 MG (30 MG, 1 IN 1 D) PER ORAL
     Route: 048
     Dates: start: 20070726, end: 20080130
  8. METFORMIN HCL [Concomitant]

REACTIONS (10)
  - LUNG NEOPLASM [None]
  - NEUROENDOCRINE TUMOUR [None]
  - CACHEXIA [None]
  - PERICARDIAL EFFUSION [None]
  - LUNG NEOPLASM MALIGNANT [None]
  - MITRAL VALVE INCOMPETENCE [None]
  - HEPATIC NEOPLASM [None]
  - METASTASES TO LIVER [None]
  - TRICUSPID VALVE INCOMPETENCE [None]
  - SYNCOPE [None]
